FAERS Safety Report 4544605-6 (Version None)
Quarter: 2004Q4

REPORT INFORMATION
  Report Type: 
  Country: None (occurrence: None)
  Receive Date: 20041230
  Receipt Date: 20041214
  Transmission Date: 20050328
  Serious: Yes (Hospitalization)
  Sender: FDA-Public Use
  Company Number: 2004BI000023

PATIENT
  Age: 46 Year
  Sex: Female
  Weight: 45.3597 kg

DRUGS (4)
  1. AVONEX [Suspect]
     Indication: MULTIPLE SCLEROSIS
     Dosage: 7.5 UG; QW; IM; 15 UG; QW; IM; 22.5 UG; QW; IM; 30 UG; QW; IM
     Route: 030
     Dates: start: 20040405, end: 20040405
  2. AVONEX [Suspect]
     Indication: MULTIPLE SCLEROSIS
     Dosage: 7.5 UG; QW; IM; 15 UG; QW; IM; 22.5 UG; QW; IM; 30 UG; QW; IM
     Route: 030
     Dates: start: 20040412, end: 20040412
  3. AVONEX [Suspect]
     Indication: MULTIPLE SCLEROSIS
     Dosage: 7.5 UG; QW; IM; 15 UG; QW; IM; 22.5 UG; QW; IM; 30 UG; QW; IM
     Route: 030
     Dates: start: 20040419, end: 20040419
  4. AVONEX [Suspect]
     Indication: MULTIPLE SCLEROSIS
     Dosage: 7.5 UG; QW; IM; 15 UG; QW; IM; 22.5 UG; QW; IM; 30 UG; QW; IM
     Route: 030
     Dates: start: 20040426

REACTIONS (2)
  - CHEST PAIN [None]
  - PNEUMONIA BACTERIAL [None]
